FAERS Safety Report 8181621-X (Version None)
Quarter: 2012Q1

REPORT INFORMATION
  Report Type: 
  Country: None (occurrence: None)
  Receive Date: 20120301
  Receipt Date: 20120301
  Transmission Date: 20120608
  Serious: Yes (Other)
  Sender: FDA-Public Use
  Company Number: None

PATIENT
  Sex: Female
  Weight: 59.4212 kg

DRUGS (1)
  1. TOBRADEX [Suspect]
     Indication: INFLAMMATION
     Dosage: 1/4^ 2 TIMES DAILY
     Dates: start: 20100201, end: 20110201

REACTIONS (4)
  - ECONOMIC PROBLEM [None]
  - ERYTHEMA OF EYELID [None]
  - EYELID OEDEMA [None]
  - EYELID BLEEDING [None]
